FAERS Safety Report 15260315 (Version 2)
Quarter: 2018Q3

REPORT INFORMATION
  Report Type: Spontaneous
  Country: DE (occurrence: DE)
  Receive Date: 20180809
  Receipt Date: 20180814
  Transmission Date: 20181010
  Serious: Yes (Other)
  Sender: FDA-Public Use
  Company Number: DE-TEVA-2018-DE-936002

PATIENT
  Sex: Male

DRUGS (1)
  1. COPAXONE [Suspect]
     Active Substance: GLATIRAMER ACETATE
     Indication: MULTIPLE SCLEROSIS
     Route: 058
     Dates: start: 20151126

REACTIONS (4)
  - Application site erythema [Not Recovered/Not Resolved]
  - Application site induration [Not Recovered/Not Resolved]
  - Necrosis [Not Recovered/Not Resolved]
  - Product quality issue [Unknown]
